FAERS Safety Report 9440915 (Version 1)
Quarter: 2013Q3

REPORT INFORMATION
  Report Type: Spontaneous
  Country: FR (occurrence: FR)
  Receive Date: 20130805
  Receipt Date: 20130805
  Transmission Date: 20140515
  Serious: Yes (Hospitalization)
  Sender: FDA-Public Use
  Company Number: PHHY2013FR082618

PATIENT
  Age: 49 Year
  Sex: Female

DRUGS (4)
  1. AFINITOR [Suspect]
     Indication: BREAST CANCER METASTATIC
     Route: 048
     Dates: start: 201212, end: 20130125
  2. ZOMETA [Suspect]
     Indication: BREAST CANCER METASTATIC
     Dates: start: 201106, end: 201301
  3. AROMASINE [Concomitant]
     Indication: BREAST CANCER METASTATIC
     Dates: start: 201106
  4. AROMASINE [Concomitant]
     Dates: start: 201212

REACTIONS (2)
  - Mucosal inflammation [Recovering/Resolving]
  - Necrotising ulcerative gingivostomatitis [Recovering/Resolving]
